FAERS Safety Report 8887769 (Version 1)
Quarter: 2012Q4

REPORT INFORMATION
  Report Type: 
  Country: US (occurrence: US)
  Receive Date: 20121106
  Receipt Date: 20121106
  Transmission Date: 20130627
  Serious: Yes (Other)
  Sender: FDA-Public Use
  Company Number: US-AMGEN-USASP2012070190

PATIENT
  Age: 76 Year
  Sex: Female

DRUGS (1)
  1. PROLIA [Suspect]
     Indication: OSTEOPOROSIS POSTMENOPAUSAL
     Dosage: UNK
     Dates: start: 201112

REACTIONS (15)
  - Bladder mass [Unknown]
  - Loss of consciousness [Unknown]
  - Muscle spasms [Unknown]
  - Chills [Unknown]
  - Dry skin [Unknown]
  - Skin exfoliation [Unknown]
  - Rash macular [Unknown]
  - Dyspnoea [Unknown]
  - Chest discomfort [Unknown]
  - Dizziness [Unknown]
  - Muscular weakness [Unknown]
  - Fatigue [Unknown]
  - Cystitis [Unknown]
  - Dysuria [Unknown]
  - Micturition urgency [Unknown]
